FAERS Safety Report 16500343 (Version 1)
Quarter: 2019Q3

REPORT INFORMATION
  Report Type: Other
  Country: CA (occurrence: CA)
  Receive Date: 20190701
  Receipt Date: 20190701
  Transmission Date: 20191004
  Serious: Yes (Disabling)
  Sender: FDA-Public Use
  Company Number: CA-APOTEX-2019AP017114

PATIENT
  Age: 16 Year
  Sex: Female
  Weight: 45 kg

DRUGS (1)
  1. APO-ARIPIPRAZOLE [Suspect]
     Active Substance: ARIPIPRAZOLE
     Indication: AUTISM SPECTRUM DISORDER
     Dosage: 2 MG, BID
     Route: 048

REACTIONS (2)
  - Insomnia [Unknown]
  - Disturbance in attention [Unknown]
